FAERS Safety Report 9054544 (Version 1)
Quarter: 2013Q1

REPORT INFORMATION
  Report Type: Spontaneous
  Country: FR (occurrence: FR)
  Receive Date: 20130208
  Receipt Date: 20130208
  Transmission Date: 20140127
  Serious: Yes (Hospitalization)
  Sender: FDA-Public Use
  Company Number: FR-PFIZER INC-2013045838

PATIENT
  Age: 31 Year
  Sex: Male

DRUGS (2)
  1. ZITHROMAX [Suspect]
     Indication: PROPHYLAXIS
     Dosage: 1 DF, 1X/DAY
     Route: 048
     Dates: start: 20120714, end: 20120716
  2. ROCEPHINE [Suspect]
     Indication: PROPHYLAXIS
     Dosage: 1 DF, SINGLE
     Route: 030
     Dates: start: 20120714, end: 20120714

REACTIONS (1)
  - Thrombocytopenic purpura [Recovered/Resolved]
